FAERS Safety Report 6520367-8 (Version None)
Quarter: 2009Q4

REPORT INFORMATION
  Report Type: 
  Country: None (occurrence: None)
  Receive Date: 20091229
  Receipt Date: 20080623
  Transmission Date: 20100525
  Serious: Yes (Other)
  Sender: FDA-Public Use
  Company Number: CA-JNJFOC-20080300225

PATIENT
  Sex: Male
  Weight: 67 kg

DRUGS (12)
  1. REMICADE [Suspect]
     Route: 042
  2. REMICADE [Suspect]
     Route: 042
  3. REMICADE [Suspect]
     Indication: PSORIASIS
     Route: 042
  4. BENADRYL [Concomitant]
     Route: 042
  5. BENADRYL [Concomitant]
     Route: 042
  6. BENADRYL [Concomitant]
     Indication: PREMEDICATION
     Route: 042
  7. SOLU-CORTEF [Concomitant]
     Route: 042
  8. SOLU-CORTEF [Concomitant]
     Route: 042
  9. SOLU-CORTEF [Concomitant]
     Indication: PREMEDICATION
     Route: 042
  10. TYLENOL (CAPLET) [Concomitant]
     Route: 048
  11. TYLENOL (CAPLET) [Concomitant]
     Route: 048
  12. TYLENOL (CAPLET) [Concomitant]
     Indication: PREMEDICATION
     Route: 048

REACTIONS (9)
  - BLOOD PRESSURE INCREASED [None]
  - CHILLS [None]
  - FATIGUE [None]
  - FLUSHING [None]
  - INFUSION RELATED REACTION [None]
  - LIP SWELLING [None]
  - PRURITUS [None]
  - PYREXIA [None]
  - TACHYCARDIA [None]
